FAERS Safety Report 8874880 (Version 2)
Quarter: 2012Q4

REPORT INFORMATION
  Report Type: 
  Country: US (occurrence: US)
  Receive Date: 20121030
  Receipt Date: 20121123
  Transmission Date: 20130627
  Serious: Yes (Hospitalization)
  Sender: FDA-Public Use
  Company Number: US-SANOFI-AVENTIS-2012SA077231

PATIENT
  Age: 75 Year
  Sex: Male
  Weight: 119.55 kg

DRUGS (12)
  1. MULTAQ [Suspect]
     Indication: ATRIAL FIBRILLATION
     Route: 048
     Dates: start: 2010
  2. ALL OTHER THERAPEUTIC PRODUCTS [Interacting]
     Indication: PHLEGM
     Route: 065
     Dates: start: 201205
  3. METOPROLOL TARTRATE [Concomitant]
     Route: 048
  4. WARFARIN SODIUM [Concomitant]
     Route: 048
  5. HYDROCHLOROTHIAZIDE [Concomitant]
  6. LISINOPRIL [Concomitant]
     Route: 048
  7. VITAMIN B COMPLEX [Concomitant]
     Dosage: 1 daily
     Route: 048
  8. OMEGA-3 [Concomitant]
     Dosage: 1000mg / 5 units daily
  9. ASPIRIN [Concomitant]
  10. MULTIVITAMINS [Concomitant]
  11. VITAMIN E [Concomitant]
     Dosage: Dose:400 unit(s)
  12. CARDIZEM [Concomitant]

REACTIONS (4)
  - Atrial fibrillation [Recovered/Resolved]
  - Arrhythmia [Recovered/Resolved]
  - Drug interaction [Recovered/Resolved]
  - Ventricular extrasystoles [Unknown]
